FAERS Safety Report 5664641-6 (Version None)
Quarter: 2008Q1

REPORT INFORMATION
  Report Type: 
  Country: None (occurrence: None)
  Receive Date: 20080314
  Receipt Date: 20080304
  Transmission Date: 20080703
  Serious: Yes (Other)
  Sender: FDA-Public Use
  Company Number: US-MERCK-0706USA00982

PATIENT
  Age: 46 Year
  Sex: Female
  Weight: 66 kg

DRUGS (3)
  1. FOSAMAX [Suspect]
     Indication: OSTEOPOROSIS
     Route: 048
     Dates: start: 20020501, end: 20060501
  2. SYNTHROID [Concomitant]
     Indication: HYPOTHYROIDISM
     Route: 065
  3. LUPRON [Concomitant]
     Route: 065

REACTIONS (20)
  - ANXIETY [None]
  - BASEDOW'S DISEASE [None]
  - BRONCHITIS [None]
  - BRONCHITIS VIRAL [None]
  - CARPAL TUNNEL SYNDROME [None]
  - DENTAL CARIES [None]
  - DEPRESSION [None]
  - DYSLIPIDAEMIA [None]
  - GINGIVAL BLEEDING [None]
  - GINGIVAL DISORDER [None]
  - GINGIVAL PAIN [None]
  - HEPATITIS [None]
  - HYPOTHYROIDISM [None]
  - OTITIS MEDIA [None]
  - PAIN IN JAW [None]
  - RESORPTION BONE INCREASED [None]
  - RHINITIS ALLERGIC [None]
  - TACHYCARDIA [None]
  - UTERINE HAEMORRHAGE [None]
  - VOCAL CORD POLYP [None]
